FAERS Safety Report 9127009 (Version 1)
Quarter: 2013Q1

REPORT INFORMATION
  Report Type: Spontaneous
  Country: US (occurrence: US)
  Receive Date: 20130228
  Receipt Date: 20130228
  Transmission Date: 20140127
  Serious: Yes (Other)
  Sender: FDA-Public Use
  Company Number: PHEH2013US004600

PATIENT
  Sex: Male

DRUGS (5)
  1. GLEEVEC [Suspect]
     Indication: CHRONIC MYELOID LEUKAEMIA
     Dosage: 400 MG, QD
     Route: 048
  2. ZOCOR [Concomitant]
     Dosage: UNK UKN, UNK
  3. METOPROLOL [Concomitant]
     Indication: BLOOD PRESSURE
     Dosage: UNK UKN, UNK
  4. POTASSIUM [Concomitant]
     Dosage: UNK UKN, UNK
  5. SYNTHROID [Concomitant]
     Dosage: UNK UKN, UNK

REACTIONS (2)
  - Thyroid cancer [Unknown]
  - Second primary malignancy [Unknown]
